FAERS Safety Report 4733626-6 (Version None)
Quarter: 2005Q3

REPORT INFORMATION
  Report Type: 
  Country: None (occurrence: None)
  Receive Date: 20050803
  Receipt Date: 20050531
  Transmission Date: 20060218
  Serious: Yes (Congenital Anomaly, Other)
  Sender: FDA-Public Use
  Company Number: US-ABBOTT-05P-163-0302531-00

PATIENT
  Sex: Male
  Weight: 2.436 kg

DRUGS (5)
  1. KALETRA [Suspect]
     Indication: DRUG EXPOSURE DURING PREGNANCY
  2. LAMIVUDINE + ZIDOVUDINE [Suspect]
     Indication: DRUG EXPOSURE DURING PREGNANCY
  3. ZIDOVUDINE [Concomitant]
     Indication: DRUG USE FOR UNKNOWN INDICATION
  4. BACTRIM [Concomitant]
     Indication: DRUG USE FOR UNKNOWN INDICATION
  5. HEPATITIS B VACCINE [Concomitant]
     Indication: DRUG USE FOR UNKNOWN INDICATION
     Route: 030
     Dates: start: 20050504, end: 20050504

REACTIONS (7)
  - ATRIAL SEPTAL DEFECT [None]
  - DYSPNOEA [None]
  - FALLOT'S TETRALOGY [None]
  - HYPERBILIRUBINAEMIA [None]
  - PULMONARY HYPOPLASIA [None]
  - RIGHT VENTRICLE OUTFLOW TRACT OBSTRUCTION [None]
  - TACHYPNOEA [None]
